FAERS Safety Report 17390446 (Version 1)
Quarter: 2020Q1

REPORT INFORMATION
  Report Type: Spontaneous
  Country: ES (occurrence: ES)
  Receive Date: 20200207
  Receipt Date: 20200207
  Transmission Date: 20200409
  Serious: Yes (Other)
  Sender: FDA-Public Use
  Company Number: NVSC2020ES029681

PATIENT
  Age: 89 Year
  Sex: Female

DRUGS (1)
  1. ZOLPIDEM TARTRATE. [Suspect]
     Active Substance: ZOLPIDEM TARTRATE
     Indication: INSOMNIA
     Dosage: 20 MG,HS
     Route: 048

REACTIONS (8)
  - Thermal burn [Unknown]
  - Bulimia nervosa [Unknown]
  - Weight increased [Recovered/Resolved]
  - Sleep-related eating disorder [Recovered/Resolved]
  - Amnesia [Unknown]
  - Overdose [Recovered/Resolved]
  - Abnormal sleep-related event [Recovered/Resolved]
  - Anorexia nervosa [Recovered/Resolved]
